FAERS Safety Report 9325837 (Version 1)
Quarter: 2013Q2

REPORT INFORMATION
  Report Type: Spontaneous
  Country: US (occurrence: None)
  Receive Date: 20130603
  Receipt Date: 20130603
  Transmission Date: 20140414
  Serious: Yes (Other)
  Sender: FDA-Public Use
  Company Number: None

PATIENT
  Age: 33 Year
  Sex: Male
  Weight: 106.6 kg

DRUGS (1)
  1. ESCITALOPRAM [Suspect]
     Indication: DYSTHYMIC DISORDER
     Dates: start: 20130514, end: 20130529

REACTIONS (5)
  - Product substitution issue [None]
  - Product quality issue [None]
  - Drug effect decreased [None]
  - Thinking abnormal [None]
  - Abnormal behaviour [None]
